FAERS Safety Report 12747424 (Version 1)
Quarter: 2016Q3

REPORT INFORMATION
  Report Type: Spontaneous
  Country: US (occurrence: US)
  Receive Date: 20160915
  Receipt Date: 20160915
  Transmission Date: 20161109
  Serious: No
  Sender: FDA-Public Use
  Company Number: US-JAZZ-2016-US-009781

PATIENT
  Sex: Female

DRUGS (31)
  1. ALBUTEROL SULFATE HFA [Concomitant]
  2. CARAFATE [Concomitant]
     Active Substance: SUCRALFATE
  3. DIAZEPAM. [Concomitant]
     Active Substance: DIAZEPAM
  4. TUMS EX [Concomitant]
     Active Substance: CALCIUM CARBONATE
  5. FERROUS SULFATE. [Concomitant]
     Active Substance: FERROUS SULFATE
  6. ZYRTEC [Concomitant]
     Active Substance: CETIRIZINE HYDROCHLORIDE
  7. MULTIVITAMIN [Concomitant]
     Active Substance: VITAMINS
  8. VITAMIN B COMPLEX [Concomitant]
     Active Substance: CYANOCOBALAMIN\DEXPANTHENOL\NIACINAMIDE\PYRIDOXINE HYDROCHLORIDE\RIBOFLAVIN 5^-PHOSPHATE SODIUM\THIAMINE HYDROCHLORIDE\VITAMIN B COMPLEX
  9. SENNA [Concomitant]
     Active Substance: SENNA LEAF\SENNOSIDES\SENNOSIDES A AND B
  10. CELEXA [Concomitant]
     Active Substance: CITALOPRAM HYDROBROMIDE
  11. METAXALONE. [Concomitant]
     Active Substance: METAXALONE
  12. MEDROL [Concomitant]
     Active Substance: METHYLPREDNISOLONE
  13. XYREM [Suspect]
     Active Substance: SODIUM OXYBATE
     Indication: NARCOLEPSY
     Dosage: 3 G, BID
     Route: 048
     Dates: start: 200904, end: 201201
  14. XYREM [Suspect]
     Active Substance: SODIUM OXYBATE
     Dosage: 3.5 G, BID
     Route: 048
     Dates: start: 201201
  15. PERCOCET [Concomitant]
     Active Substance: ACETAMINOPHEN\OXYCODONE HYDROCHLORIDE
  16. ACYCLOVIR. [Concomitant]
     Active Substance: ACYCLOVIR
  17. COLACE [Concomitant]
     Active Substance: DOCUSATE SODIUM
  18. PATADAY [Concomitant]
     Active Substance: OLOPATADINE HYDROCHLORIDE
  19. NEXIUM [Concomitant]
     Active Substance: ESOMEPRAZOLE MAGNESIUM
  20. OXYBUTYNIN [Concomitant]
     Active Substance: OXYBUTYNIN
  21. RITALIN [Concomitant]
     Active Substance: METHYLPHENIDATE HYDROCHLORIDE
  22. AMBIEN [Concomitant]
     Active Substance: ZOLPIDEM TARTRATE
  23. NASONEX [Concomitant]
     Active Substance: MOMETASONE FUROATE
  24. FLONASE [Concomitant]
     Active Substance: FLUTICASONE PROPIONATE
  25. FISH OIL CONCENTRATE [Concomitant]
  26. AUGMENTIN [Concomitant]
     Active Substance: AMOXICILLIN\CLAVULANATE POTASSIUM
  27. CLARITIN [Concomitant]
     Active Substance: LORATADINE
  28. GABAPENTIN. [Concomitant]
     Active Substance: GABAPENTIN
  29. ZOVIRAX [Concomitant]
     Active Substance: ACYCLOVIR
  30. NEXIUM [Concomitant]
     Active Substance: ESOMEPRAZOLE MAGNESIUM
  31. EXCEDRIN MIGRAINE [Concomitant]
     Active Substance: ACETAMINOPHEN\ASPIRIN\CAFFEINE

REACTIONS (2)
  - Hypersensitivity [Unknown]
  - Migraine [Recovering/Resolving]
